FAERS Safety Report 20867809 (Version 6)
Quarter: 2022Q4

REPORT INFORMATION
  Report Type: Spontaneous
  Country: US (occurrence: US)
  Receive Date: 20220524
  Receipt Date: 20221025
  Transmission Date: 20230112
  Serious: No
  Sender: FDA-Public Use
  Company Number: US-PFIZER INC-202200647009

PATIENT
  Age: 79 Year
  Sex: Female
  Weight: 44 kg

DRUGS (2)
  1. GENOTROPIN [Suspect]
     Active Substance: SOMATROPIN
     Indication: Empty sella syndrome
     Dosage: 0.2 MG (0.2 EACH DAY AT BEDTIME)
  2. GENOTROPIN [Suspect]
     Active Substance: SOMATROPIN
     Indication: Central hypothyroidism
     Dosage: UNK

REACTIONS (5)
  - Wrong technique in device usage process [Unknown]
  - Drug dose omission by device [Unknown]
  - Off label use [Unknown]
  - Intentional product misuse [Unknown]
  - Device breakage [Unknown]
